FAERS Safety Report 23311720 (Version 1)
Quarter: 2023Q4

REPORT INFORMATION
  Report Type: Spontaneous
  Country: US (occurrence: US)
  Receive Date: 20231219
  Receipt Date: 20231219
  Transmission Date: 20240110
  Serious: No
  Sender: FDA-Public Use
  Company Number: US-SA-SAC20231213000717

PATIENT
  Sex: Male
  Weight: 15 kg

DRUGS (5)
  1. DUPIXENT [Suspect]
     Active Substance: DUPILUMAB
     Indication: Dermatitis atopic
     Dosage: 300 MG, Q4W
     Route: 058
  2. MOMETASONE FUROATE [Concomitant]
     Active Substance: MOMETASONE FUROATE
  3. AMOXICILLIN [Concomitant]
     Active Substance: AMOXICILLIN
  4. EPINEPHRINE [Concomitant]
     Active Substance: EPINEPHRINE
  5. EUCRISA [Concomitant]
     Active Substance: CRISABOROLE

REACTIONS (1)
  - Dermatitis atopic [Unknown]
